FAERS Safety Report 8547778-3 (Version None)
Quarter: 2012Q3

REPORT INFORMATION
  Report Type: 
  Country: None (occurrence: None)
  Receive Date: 20120727
  Receipt Date: 20120109
  Transmission Date: 20120928
  Serious: Yes (Life-Threatening)
  Sender: FDA-Public Use
  Company Number: US-ASTRAZENECA-2012SE00833

PATIENT
  Age: 329 Month
  Sex: Male
  Weight: 108.9 kg

DRUGS (2)
  1. SEROQUEL [Suspect]
     Route: 048
     Dates: start: 20040101
  2. SEROQUEL [Suspect]
     Route: 048
     Dates: start: 20040101, end: 20090101

REACTIONS (2)
  - MALAISE [None]
  - TYPE 1 DIABETES MELLITUS [None]
